FAERS Safety Report 15891691 (Version 1)
Quarter: 2019Q1

REPORT INFORMATION
  Report Type: Spontaneous
  Country: US (occurrence: US)
  Receive Date: 20190130
  Receipt Date: 20190130
  Transmission Date: 20190417
  Serious: Yes (Life-Threatening, Hospitalization, Other)
  Sender: FDA-Public Use
  Company Number: US-C B FLEET CO INC-201901-US-000223

PATIENT
  Age: 2 Month
  Sex: Male

DRUGS (1)
  1. LITTLE REMEDIES GAS RELIEF DROPS [Suspect]
     Active Substance: DIMETHICONE
     Indication: FLATULENCE
     Route: 048

REACTIONS (7)
  - Dyspnoea [Recovered/Resolved]
  - Decreased appetite [Recovered/Resolved]
  - Hypersomnia [Recovered/Resolved]
  - Respiratory syncytial virus infection [Recovered/Resolved]
  - Asthenia [Recovered/Resolved]
  - Hypoxia [Recovered/Resolved]
  - Pneumonia [Recovered/Resolved]
